FAERS Safety Report 7251837-5 (Version None)
Quarter: 2011Q1

REPORT INFORMATION
  Report Type: 
  Country: None (occurrence: None)
  Receive Date: 20110128
  Receipt Date: 20100104
  Transmission Date: 20110831
  Serious: No
  Sender: FDA-Public Use
  Company Number: US-ABBOTT-10P-163-0618183-00

PATIENT
  Sex: Male
  Weight: 81.72 kg

DRUGS (2)
  1. HUMIRA [Suspect]
     Indication: PSORIATIC ARTHROPATHY
  2. HUMIRA [Suspect]
     Indication: PSORIASIS
     Route: 050
     Dates: end: 20091001

REACTIONS (4)
  - PAIN IN EXTREMITY [None]
  - HYPOAESTHESIA [None]
  - EXOSTOSIS [None]
  - OEDEMA PERIPHERAL [None]
